FAERS Safety Report 14597567 (Version 1)
Quarter: 2018Q1

REPORT INFORMATION
  Report Type: Report from Study
  Country: US (occurrence: US)
  Receive Date: 20180305
  Receipt Date: 20180305
  Transmission Date: 20180509
  Serious: Yes (Other)
  Sender: FDA-Public Use
  Company Number: US-ROCHE-2082643

PATIENT
  Sex: Male
  Weight: 69.46 kg

DRUGS (4)
  1. TAMULOSIN [Concomitant]
     Active Substance: TAMSULOSIN
     Route: 065
  2. VITAMIN D2 [Concomitant]
     Active Substance: ERGOCALCIFEROL
     Dosage: ONGOING: YES
     Route: 065
  3. RITUXAN [Suspect]
     Active Substance: RITUXIMAB
     Indication: PRODUCT USED FOR UNKNOWN INDICATION
     Dosage: ONGOING: NO
     Route: 065
     Dates: start: 20170914, end: 20180202
  4. AMOXICILLIN. [Concomitant]
     Active Substance: AMOXICILLIN
     Dosage: USE BEFORE DENTAL PROCEDURES ;ONGOING: UNKNOWN
     Route: 065

REACTIONS (8)
  - Vomiting [Unknown]
  - Headache [Unknown]
  - Night sweats [Unknown]
  - Pyrexia [Unknown]
  - Deafness bilateral [Not Recovered/Not Resolved]
  - Non-Hodgkin^s lymphoma [Unknown]
  - Dry eye [Unknown]
  - Chills [Unknown]
